FAERS Safety Report 10060496 (Version 1)
Quarter: 2014Q2

REPORT INFORMATION
  Report Type: Spontaneous
  Country: DK (occurrence: DK)
  Receive Date: 20140404
  Receipt Date: 20140404
  Transmission Date: 20141212
  Serious: Yes (Other)
  Sender: FDA-Public Use
  Company Number: DK-ACTAVIS-2014-06200

PATIENT
  Age: 72 Year
  Sex: Female

DRUGS (1)
  1. LETROZOLE (UNKNOWN) [Suspect]
     Indication: BREAST CANCER
     Dosage: 2.5 MG, DAILY
     Route: 048
     Dates: start: 20130720

REACTIONS (1)
  - Trigger finger [Not Recovered/Not Resolved]
